FAERS Safety Report 9524316 (Version 1)
Quarter: 2013Q1

REPORT INFORMATION
  Report Type: Spontaneous
  Country: US (occurrence: None)
  Receive Date: 20130305
  Receipt Date: 20130305
  Transmission Date: 20140127
  Serious: Yes (Other)
  Sender: FDA-Public Use
  Company Number: 163-21880-12031455

PATIENT
  Age: 67 Year
  Sex: Female

DRUGS (3)
  1. REVLIMID (LENALIDOMIDE) (25 MILLIGRAM, CAPSULES) [Suspect]
     Indication: PLASMA CELL MYELOMA
     Dosage: 25 MG, DAILY FOR 21 DAYS THEN OFF 7 DAYS, PO
     Route: 048
     Dates: start: 20111003
  2. DEXMETHASONE (DEXAMETHASONE) (UNKNOWN) [Concomitant]
  3. PREDNISONE (PREDNISONE) (UNKNOWN)? [Concomitant]

REACTIONS (1)
  - Cataract [None]
